FAERS Safety Report 16568158 (Version 1)
Quarter: 2019Q3

REPORT INFORMATION
  Report Type: Spontaneous
  Country: US (occurrence: US)
  Receive Date: 20190712
  Receipt Date: 20190712
  Transmission Date: 20191004
  Serious: No
  Sender: FDA-Public Use
  Company Number: US-BIODELIVERY SCIENCES INTERNATIONAL-2018BDSI0266

PATIENT
  Age: 50 Year
  Sex: Female
  Weight: 64.92 kg

DRUGS (6)
  1. BUPRENORPHINE/NALOXONE [Suspect]
     Active Substance: BUPRENORPHINE\NALOXONE
     Dosage: 4.2/0.7 MG
     Route: 002
     Dates: start: 201804
  2. BUPRENORPHINE/NALOXONE [Suspect]
     Active Substance: BUPRENORPHINE\NALOXONE
     Indication: PSORIATIC ARTHROPATHY
     Dosage: 6.3/1 MG -ONE FILM ALONG WITH 1/2 FILM ONCE PER DAY
     Route: 002
     Dates: start: 201605, end: 201608
  3. BUPRENORPHINE/NALOXONE [Suspect]
     Active Substance: BUPRENORPHINE\NALOXONE
     Dosage: 6.3/1 MG
     Route: 002
     Dates: start: 201608, end: 201701
  4. BUPRENORPHINE/NALOXONE [Suspect]
     Active Substance: BUPRENORPHINE\NALOXONE
     Dosage: 2.1/0.3 MG
     Route: 002
  5. BUPRENORPHINE/NALOXONE [Suspect]
     Active Substance: BUPRENORPHINE\NALOXONE
     Dosage: 4.2/0.7 MG
     Route: 002
     Dates: start: 201701, end: 201704
  6. BUPRENORPHINE/NALOXONE [Suspect]
     Active Substance: BUPRENORPHINE\NALOXONE
     Dosage: 4.2/0.7 MG
     Route: 002

REACTIONS (5)
  - Product administration error [Recovered/Resolved]
  - Pain [Recovered/Resolved]
  - Product packaging issue [Unknown]
  - Product use in unapproved indication [Unknown]
  - Product packaging quantity issue [Unknown]

NARRATIVE: CASE EVENT DATE: 201605
